FAERS Safety Report 13307541 (Version 1)
Quarter: 2017Q1

REPORT INFORMATION
  Report Type: Spontaneous
  Country: BG (occurrence: BG)
  Receive Date: 20170308
  Receipt Date: 20170308
  Transmission Date: 20170428
  Serious: Yes (Death, Hospitalization, Other)
  Sender: FDA-Public Use
  Company Number: BG-BAYER-2017-039324

PATIENT
  Age: 61 Year
  Sex: Male

DRUGS (2)
  1. NEXAVAR [Suspect]
     Active Substance: SORAFENIB
     Indication: HEPATOCELLULAR CARCINOMA
     Dosage: 200 MG, BID
     Dates: start: 2011
  2. NEXAVAR [Suspect]
     Active Substance: SORAFENIB
     Indication: HEPATOCELLULAR CARCINOMA
     Dosage: 400 MG, BID
     Dates: start: 201007, end: 2011

REACTIONS (12)
  - General physical health deterioration [None]
  - Nausea [None]
  - General physical health deterioration [None]
  - Rash [Recovered/Resolved]
  - Decreased appetite [None]
  - Thermal burn [Recovered/Resolved]
  - Thrombocytopenia [None]
  - Blood pressure increased [Recovered/Resolved]
  - Death [Fatal]
  - Hepatic enzyme increased [None]
  - Weight decreased [None]
  - Diarrhoea [Recovered/Resolved]

NARRATIVE: CASE EVENT DATE: 2011
